FAERS Safety Report 16689608 (Version 1)
Quarter: 2019Q3

REPORT INFORMATION
  Report Type: Spontaneous
  Country: CN (occurrence: CN)
  Receive Date: 20190809
  Receipt Date: 20190809
  Transmission Date: 20191004
  Serious: Yes (Hospitalization, Other)
  Sender: FDA-Public Use
  Company Number: CN-ASTRAZENECA-2019SF09153

PATIENT
  Sex: Female

DRUGS (4)
  1. NEXIUM I.V. [Suspect]
     Active Substance: ESOMEPRAZOLE SODIUM
     Dosage: 808 REGIMEN AND RECEIVED THE DRUG AT NORMAL DOSE FOR 3 DAYS
     Route: 042
  2. ALUMINUM SULFATE. [Concomitant]
     Active Substance: ALUMINUM SULFATE
  3. NEXIUM I.V. [Suspect]
     Active Substance: ESOMEPRAZOLE SODIUM
     Dosage: 40MG BID, ONE BRANCH AT A TIME FOR 2-3 DAYS
     Route: 042
  4. NEXIUM I.V. [Suspect]
     Active Substance: ESOMEPRAZOLE SODIUM
     Dosage: 8MG/H FOR ABOUT 5 DAYS
     Route: 042

REACTIONS (3)
  - Haemorrhage [Unknown]
  - Thrombocytopenia [Unknown]
  - Discomfort [Unknown]
